FAERS Safety Report 19788511 (Version 1)
Quarter: 2021Q3

REPORT INFORMATION
  Report Type: Spontaneous
  Country: AU (occurrence: AU)
  Receive Date: 20210903
  Receipt Date: 20210903
  Transmission Date: 20211014
  Serious: Yes (Other)
  Sender: FDA-Public Use
  Company Number: AU-009507513-2108AUS007278

PATIENT
  Age: 61 Year
  Sex: Male

DRUGS (12)
  1. CAPECITABINE. [Suspect]
     Active Substance: CAPECITABINE
     Indication: PANCREATIC NEUROENDOCRINE TUMOUR
     Dosage: UNK
     Dates: start: 201611, end: 201705
  2. DOTA?TYR(3)?OCTREOTID;LUTETIUM (LU 177) [Suspect]
     Active Substance: EDOTREOTIDE LUTETIUM LU-177
     Dosage: UNK
     Dates: start: 201903, end: 201905
  3. OCTREOTIDE. [Suspect]
     Active Substance: OCTREOTIDE
     Indication: PANCREATIC NEUROENDOCRINE TUMOUR
     Dosage: UNK
     Dates: start: 202003, end: 202005
  4. CAPECITABINE. [Suspect]
     Active Substance: CAPECITABINE
     Dosage: UNK
     Dates: start: 201903, end: 201905
  5. TEMOZOLOMIDE. [Suspect]
     Active Substance: TEMOZOLOMIDE
     Indication: PANCREATIC NEUROENDOCRINE TUMOUR
  6. CLEXANE [Suspect]
     Active Substance: ENOXAPARIN SODIUM
     Indication: PANCREATIC NEUROENDOCRINE TUMOUR
     Dosage: UNK
     Dates: start: 201904, end: 202002
  7. ENOXAPARIN [Suspect]
     Active Substance: ENOXAPARIN
     Indication: PANCREATIC NEUROENDOCRINE TUMOUR
     Dosage: UNK
     Dates: start: 201904, end: 202002
  8. DOTA?TYR(3)?OCTREOTID;LUTETIUM (LU 177) [Suspect]
     Active Substance: EDOTREOTIDE LUTETIUM LU-177
     Indication: PANCREATIC NEUROENDOCRINE TUMOUR
     Dosage: UNK
     Dates: start: 201611, end: 201705
  9. VOTRIENT [Suspect]
     Active Substance: PAZOPANIB HYDROCHLORIDE
     Indication: PANCREATIC NEUROENDOCRINE TUMOUR
     Dosage: 200 MILLIGRAM
     Route: 062
     Dates: start: 202005
  10. XARELTO [Suspect]
     Active Substance: RIVAROXABAN
     Indication: PANCREATIC NEUROENDOCRINE TUMOUR
     Dosage: UNK
     Dates: start: 202002
  11. SUNITINIB [Suspect]
     Active Substance: SUNITINIB
     Indication: PANCREATIC NEUROENDOCRINE TUMOUR
     Dosage: UNK
     Dates: start: 202002
  12. VOTRIENT [Suspect]
     Active Substance: PAZOPANIB HYDROCHLORIDE
     Indication: PANCREATIC NEUROENDOCRINE TUMOUR
     Dosage: 800 MILLIGRAM, INTERVAL: 1 DAY
     Route: 048

REACTIONS (6)
  - Drug intolerance [Unknown]
  - Recurrent cancer [Unknown]
  - Hypercholesterolaemia [Unknown]
  - Metastases to liver [Unknown]
  - Pulmonary embolism [Unknown]
  - Malignant neoplasm progression [Unknown]

NARRATIVE: CASE EVENT DATE: 201901
